FAERS Safety Report 4948008-1 (Version None)
Quarter: 2006Q1

REPORT INFORMATION
  Report Type: 
  Country: None (occurrence: None)
  Receive Date: 20060320
  Receipt Date: 20051123
  Transmission Date: 20060701
  Serious: Yes (Hospitalization)
  Sender: FDA-Public Use
  Company Number: US-MERCK-0511USA04081

PATIENT
  Age: 61 Year
  Sex: Female
  Weight: 123 kg

DRUGS (37)
  1. VIOXX [Suspect]
     Indication: OSTEOARTHRITIS
     Route: 048
     Dates: start: 19990722, end: 20021201
  2. ACCUPRIL [Concomitant]
     Route: 065
  3. ACULAR [Concomitant]
     Route: 065
  4. ALBUTEROL [Concomitant]
     Route: 065
  5. ATROVENT [Concomitant]
     Route: 065
  6. BAYCOL [Concomitant]
     Route: 065
  7. BENZONATATE [Concomitant]
     Route: 065
  8. CLARINEX [Concomitant]
     Route: 065
  9. CLARITIN [Concomitant]
     Route: 065
  10. COUMADIN [Concomitant]
     Route: 065
  11. CYCLOBENZAPRINE HYDROCHLORIDE [Concomitant]
     Route: 065
  12. CYCRIN [Concomitant]
     Route: 065
  13. DICYCLOMINE HYDROCHLORIDE [Concomitant]
     Route: 065
  14. DIFLUCAN [Concomitant]
     Route: 065
  15. DOXYCYCLINE [Concomitant]
     Route: 065
  16. FEMHRT [Concomitant]
     Route: 065
  17. FLEXERIL [Concomitant]
     Route: 065
  18. GUAIFENESIN [Concomitant]
     Route: 065
  19. HUMIBID L.A. [Concomitant]
     Route: 065
  20. HYDROCHLOROTHIAZIDE [Concomitant]
     Route: 065
  21. HYOSCYAMINE [Concomitant]
     Route: 065
  22. MACROBID [Concomitant]
     Route: 065
  23. NEXIUM [Concomitant]
     Route: 065
  24. NORVASC [Concomitant]
     Route: 065
  25. PREDNISONE [Concomitant]
     Route: 065
  26. PREMPRO [Concomitant]
     Route: 065
  27. PRILOSEC [Concomitant]
     Route: 065
  28. PROVENTIL [Concomitant]
     Route: 065
  29. SINGULAIR [Concomitant]
     Route: 065
  30. SULFAMETHOXAZOLE AND TRIMETHOPRIM [Concomitant]
     Route: 065
  31. SYNTHROID [Concomitant]
     Route: 065
  32. THYROID TABLETS USP [Concomitant]
     Route: 065
  33. TRINALIN [Concomitant]
     Route: 065
  34. ZANAFLEX [Concomitant]
     Route: 065
  35. ZAROXOLYN [Concomitant]
     Route: 065
  36. ZITHROMAX [Concomitant]
     Route: 065
  37. ASPIRIN [Concomitant]
     Route: 065

REACTIONS (10)
  - ARTHROPATHY [None]
  - ASTHENIA [None]
  - BLOOD CHOLESTEROL INCREASED [None]
  - BLOOD DISORDER [None]
  - DYSPNOEA [None]
  - FALL [None]
  - FIBROMYALGIA [None]
  - HIP ARTHROPLASTY [None]
  - HYPOTHYROIDISM [None]
  - PULMONARY EMBOLISM [None]
